FAERS Safety Report 7406009-8 (Version None)
Quarter: 2011Q2

REPORT INFORMATION
  Report Type: 
  Country: None (occurrence: None)
  Receive Date: 20110411
  Receipt Date: 20110404
  Transmission Date: 20111010
  Serious: Yes (Hospitalization)
  Sender: FDA-Public Use
  Company Number: A0896997A

PATIENT
  Age: 55 Year
  Sex: Male

DRUGS (8)
  1. AVANDIA [Suspect]
     Dosage: 4MG PER DAY
     Route: 048
     Dates: start: 20060203
  2. NITROGLYCERIN [Concomitant]
  3. ASPIRIN [Concomitant]
  4. BENICAR [Concomitant]
  5. TOPROL-XL [Concomitant]
  6. HYDROCHLOROTHIAZIDE [Concomitant]
  7. LIPITOR [Concomitant]
  8. AVANDAMET [Suspect]
     Route: 048

REACTIONS (2)
  - ARTERIOSCLEROSIS [None]
  - ANGINA UNSTABLE [None]
